FAERS Safety Report 9470266 (Version 1)
Quarter: 2013Q3

REPORT INFORMATION
  Report Type: Spontaneous
  Country: US (occurrence: US)
  Receive Date: 20130822
  Receipt Date: 20130822
  Transmission Date: 20140515
  Serious: No
  Sender: FDA-Public Use
  Company Number: US-SANOFI-AVENTIS-2013SA060386

PATIENT
  Age: 88 Year
  Sex: Male
  Weight: 90.71 kg

DRUGS (7)
  1. MULTAQ [Suspect]
     Indication: ATRIAL FIBRILLATION
     Route: 048
  2. MULTAQ [Suspect]
     Indication: ATRIAL FIBRILLATION
     Route: 048
     Dates: start: 201010
  3. TOPROL XL [Concomitant]
     Indication: BLOOD PRESSURE
     Dates: start: 200301
  4. SPIRONOLACTONE [Concomitant]
     Indication: DIURETIC THERAPY
     Dates: start: 2011
  5. VITAMIN B12 [Concomitant]
     Dates: start: 2011
  6. FOLIC ACID [Concomitant]
     Dates: start: 2011
  7. XARELTO [Concomitant]
     Indication: ANTICOAGULANT THERAPY
     Dates: start: 201302

REACTIONS (3)
  - Heart rate decreased [Recovered/Resolved]
  - Therapy change [Unknown]
  - Nausea [Unknown]
